FAERS Safety Report 8859336 (Version 3)
Quarter: 2014Q4

REPORT INFORMATION
  Report Type: Spontaneous
  Country: US (occurrence: US)
  Receive Date: 20121024
  Receipt Date: 20141229
  Transmission Date: 20150529
  Serious: No
  Sender: FDA-Public Use
  Company Number: US-ASTRAZENECA-2012SE12818

PATIENT
  Age: 41 Year
  Sex: Male

DRUGS (2)
  1. MISCARDIS [Concomitant]
  2. TOPROL XL [Suspect]
     Active Substance: METOPROLOL SUCCINATE
     Indication: BLOOD PRESSURE ABNORMAL
     Route: 048

REACTIONS (6)
  - Frustration [Unknown]
  - Intentional product misuse [Unknown]
  - Gout [Unknown]
  - Adverse event [Unknown]
  - Headache [Unknown]
  - Drug dose omission [Unknown]
